FAERS Safety Report 9108491 (Version 2)
Quarter: 2013Q1

REPORT INFORMATION
  Report Type: Spontaneous
  Country: IL (occurrence: IL)
  Receive Date: 20130222
  Receipt Date: 20130313
  Transmission Date: 20140127
  Serious: Yes (Hospitalization, Other)
  Sender: FDA-Public Use
  Company Number: IL-B.I. PHARMACEUTICALS,INC./RIDGEFIELD-2013-AP-00132RI

PATIENT
  Age: 78 Year
  Sex: Male
  Weight: 124 kg

DRUGS (5)
  1. PRADAXA [Suspect]
     Indication: ATRIAL FIBRILLATION
     Dosage: 300 MG
     Route: 048
     Dates: start: 20120604, end: 20120815
  2. JANUET [Suspect]
     Indication: TYPE 2 DIABETES MELLITUS
     Dosage: 100/2000
     Dates: start: 20110202, end: 20120815
  3. AMARYL [Concomitant]
     Indication: TYPE 2 DIABETES MELLITUS
     Dosage: 0.5 MG
     Dates: start: 20110822, end: 20120815
  4. SIMVASTATIN [Concomitant]
     Indication: HYPERCHOLESTEROLAEMIA
     Dosage: 10 MG
     Dates: start: 20111108, end: 20120815
  5. OXOPURIN [Concomitant]
     Indication: TYPE 2 DIABETES MELLITUS
     Dosage: 1200 MG
     Dates: start: 20110202, end: 20120731

REACTIONS (2)
  - Jaundice [Recovered/Resolved]
  - Hepatitis toxic [Recovered/Resolved]
